FAERS Safety Report 5368751-2 (Version None)
Quarter: 2007Q2

REPORT INFORMATION
  Report Type: 
  Country: None (occurrence: None)
  Receive Date: 20070625
  Receipt Date: 20070525
  Transmission Date: 20071010
  Serious: Yes (Disabling)
  Sender: FDA-Public Use
  Company Number: US-BRISTOL-MYERS SQUIBB COMPANY-13794342

PATIENT
  Sex: Male

DRUGS (1)
  1. ORENCIA [Suspect]
     Dates: start: 20070523, end: 20070523

REACTIONS (1)
  - PAIN [None]
